FAERS Safety Report 12614182 (Version 2)
Quarter: 2016Q4

REPORT INFORMATION
  Report Type: Spontaneous
  Country: GB (occurrence: GB)
  Receive Date: 20160802
  Receipt Date: 20161017
  Transmission Date: 20170207
  Serious: Yes (Death, Congenital Anomaly)
  Sender: FDA-Public Use
  Company Number: GB-PFIZER INC-2016360386

PATIENT

DRUGS (2)
  1. MIFEPRISTONE [Suspect]
     Active Substance: MIFEPRISTONE
     Indication: ABORTION INDUCED
     Dosage: 200 MG (TOTAL)
     Route: 064
     Dates: start: 20160327, end: 20160327
  2. MISOPROSTOL. [Suspect]
     Active Substance: MISOPROSTOL
     Indication: ABORTION INDUCED
     Dosage: 400 UG (TOTAL)
     Route: 064
     Dates: start: 20160329, end: 20160329

REACTIONS (3)
  - Renal dysplasia [Not Recovered/Not Resolved]
  - Congenital cystic kidney disease [Fatal]
  - Maternal exposure during pregnancy [Fatal]
